FAERS Safety Report 7978789-4 (Version None)
Quarter: 2011Q4

REPORT INFORMATION
  Report Type: 
  Country: None (occurrence: None)
  Receive Date: 20111129
  Receipt Date: 20110812
  Transmission Date: 20120403
  Serious: Yes (Other)
  Sender: FDA-Public Use
  Company Number: PHHY2011US56855

PATIENT
  Age: 13 Year
  Sex: Female
  Weight: 60.3 kg

DRUGS (5)
  1. CARBATROL [Concomitant]
  2. AFINITOR [Suspect]
     Indication: TUBEROUS SCLEROSIS
     Dosage: 5 MG, DAILY, ORAL
     Route: 048
     Dates: start: 20110729
  3. AFINITOR [Suspect]
     Indication: TUBEROUS SCLEROSIS
     Dosage: 5 MG, DAILY, ORAL
     Route: 048
     Dates: start: 20110523, end: 20110630
  4. TEGRETOL [Concomitant]
  5. VITAMIN D [Concomitant]

REACTIONS (8)
  - DERMATITIS INFECTED [None]
  - ECZEMA [None]
  - FOLLICULITIS [None]
  - URTICARIA [None]
  - PRURITUS [None]
  - NEUTROPHIL COUNT DECREASED [None]
  - WHITE BLOOD CELL COUNT DECREASED [None]
  - ERYTHEMA [None]
